FAERS Safety Report 12352050 (Version 1)
Quarter: 2016Q2

REPORT INFORMATION
  Report Type: Report from Study
  Country: NO (occurrence: NO)
  Receive Date: 20160510
  Receipt Date: 20160510
  Transmission Date: 20160815
  Serious: Yes (Other)
  Sender: FDA-Public Use
  Company Number: NO-BAYER-2016-089075

PATIENT
  Age: 35 Year
  Sex: Female

DRUGS (1)
  1. MIRENA [Suspect]
     Active Substance: LEVONORGESTREL
     Dosage: 20 MCG/24HR, CONT
     Route: 015
     Dates: start: 20160330, end: 20160331

REACTIONS (8)
  - Neutrophil count increased [None]
  - White blood cell count increased [None]
  - Pyrexia [None]
  - Infection [None]
  - Procedural pain [None]
  - Abdominal pain [None]
  - Malaise [None]
  - Complication of device insertion [None]

NARRATIVE: CASE EVENT DATE: 20160331
